FAERS Safety Report 24834065 (Version 1)
Quarter: 2025Q1

REPORT INFORMATION
  Report Type: Spontaneous
  Country: IT (occurrence: IT)
  Receive Date: 20250113
  Receipt Date: 20250113
  Transmission Date: 20250409
  Serious: Yes (Hospitalization)
  Sender: NOVO NORDISK
  Company Number: None

PATIENT
  Age: 78 Year
  Sex: Female

DRUGS (2)
  1. NOVORAPID [Suspect]
     Active Substance: INSULIN ASPART
     Indication: Product used for unknown indication
     Dosage: 34 IU, QD (6 IU FOR BREAKFAST + 14 IU LUNCH + 14 IU DINNER)
     Route: 058
  2. INSULIN GLARGINE [Suspect]
     Active Substance: INSULIN GLARGINE
     Indication: Product used for unknown indication
     Dosage: 20 IU, QD
     Route: 058

REACTIONS (2)
  - Hypoglycaemia [Recovering/Resolving]
  - Sopor [Recovered/Resolved]

NARRATIVE: CASE EVENT DATE: 20240915
